FAERS Safety Report 7981442-4 (Version None)
Quarter: 2011Q4

REPORT INFORMATION
  Report Type: 
  Country: None (occurrence: None)
  Receive Date: 20111212
  Receipt Date: 20111127
  Transmission Date: 20120403
  Serious: Yes (Other)
  Sender: FDA-Public Use
  Company Number: GB-DEXPHARM-20111813

PATIENT
  Age: 63 Year
  Sex: Female

DRUGS (9)
  1. IRBESARTAN [Concomitant]
  2. RANITIDINE [Concomitant]
  3. OMEPRAZOLE [Suspect]
     Dates: start: 20111116
  4. CITALOPRAM [Concomitant]
  5. ESTRADIOL [Concomitant]
  6. NIFEDIPINE [Concomitant]
  7. ACETIC ACID [Concomitant]
  8. LEVOTHYROXINE SODIUM [Concomitant]
  9. SIMVASTATIN [Concomitant]

REACTIONS (1)
  - TINNITUS [None]
